FAERS Safety Report 17765336 (Version 2)
Quarter: 2020Q2

REPORT INFORMATION
  Report Type: Spontaneous
  Country: US (occurrence: US)
  Receive Date: 20200511
  Receipt Date: 20200529
  Transmission Date: 20200714
  Serious: No
  Sender: FDA-Public Use
  Company Number: US-PFIZER INC-2020125892

PATIENT
  Age: 81 Year
  Sex: Female
  Weight: 52.16 kg

DRUGS (6)
  1. TALZENNA [Suspect]
     Active Substance: TALAZOPARIB TOSYLATE
     Indication: PLEURAL MESOTHELIOMA
     Dosage: UNK
  2. TALZENNA [Suspect]
     Active Substance: TALAZOPARIB TOSYLATE
     Dosage: UNK
     Dates: start: 20200424
  3. TALZENNA [Suspect]
     Active Substance: TALAZOPARIB TOSYLATE
     Indication: MESOTHELIOMA
     Dosage: 1 MG, 1X/DAY
     Route: 048
     Dates: end: 20200410
  4. LABETALOL [Concomitant]
     Active Substance: LABETALOL\LABETALOL HYDROCHLORIDE
     Indication: HYPERTENSION
     Dosage: 1X/DAY (100-200MG A DAY, DEPENDING ON BLOOD PRESSURE READING)
  5. TALZENNA [Suspect]
     Active Substance: TALAZOPARIB TOSYLATE
     Dosage: 1 MG, 1X/DAY
     Route: 048
     Dates: start: 202004
  6. LOSARTAN. [Concomitant]
     Active Substance: LOSARTAN
     Indication: HYPERTENSION
     Dosage: 100 MG, 1X/DAY

REACTIONS (12)
  - Constipation [Not Recovered/Not Resolved]
  - Gait disturbance [Unknown]
  - Weight fluctuation [Unknown]
  - Product use in unapproved indication [Unknown]
  - Vomiting [Not Recovered/Not Resolved]
  - Proctalgia [Unknown]
  - Headache [Unknown]
  - Neoplasm progression [Unknown]
  - Off label use [Unknown]
  - Weight decreased [Unknown]
  - Nausea [Unknown]
  - Appetite disorder [Unknown]

NARRATIVE: CASE EVENT DATE: 20200410
